FAERS Safety Report 24674476 (Version 1)
Quarter: 2024Q4

REPORT INFORMATION
  Report Type: Spontaneous
  Country: US (occurrence: US)
  Receive Date: 20241128
  Receipt Date: 20241128
  Transmission Date: 20250115
  Serious: No
  Sender: STRIDES
  Company Number: US-STRIDES ARCOLAB LIMITED-2024SP009762

PATIENT
  Age: 46 Year
  Sex: Female

DRUGS (5)
  1. TOPIRAMATE [Suspect]
     Active Substance: TOPIRAMATE
     Indication: Idiopathic intracranial hypertension
     Dosage: UNK
     Route: 065
  2. TOPIRAMATE [Suspect]
     Active Substance: TOPIRAMATE
     Indication: Condition aggravated
  3. TACROLIMUS [Concomitant]
     Active Substance: TACROLIMUS
     Indication: Prophylaxis against transplant rejection
     Dosage: UNK
     Route: 065
     Dates: start: 2022
  4. METHAZOLAMIDE [Concomitant]
     Active Substance: METHAZOLAMIDE
     Indication: Idiopathic intracranial hypertension
     Dosage: UNK
     Route: 065
  5. METHAZOLAMIDE [Concomitant]
     Active Substance: METHAZOLAMIDE
     Indication: Condition aggravated

REACTIONS (1)
  - Off label use [Unknown]
